FAERS Safety Report 10189245 (Version 1)
Quarter: 2014Q2

REPORT INFORMATION
  Report Type: Spontaneous
  Country: US (occurrence: US)
  Receive Date: 20140522
  Receipt Date: 20140522
  Transmission Date: 20141212
  Serious: Yes (Hospitalization)
  Sender: FDA-Public Use
  Company Number: US-JNJFOC-20140513462

PATIENT
  Age: 71 Year
  Sex: Female

DRUGS (4)
  1. IMBRUVICA [Suspect]
     Indication: CHRONIC LYMPHOCYTIC LEUKAEMIA
     Route: 048
  2. MOTRIN [Suspect]
     Indication: PRODUCT USED FOR UNKNOWN INDICATION
  3. ARIXTRA [Suspect]
     Indication: DEEP VEIN THROMBOSIS
  4. EXCEDRIN NOS [Suspect]
     Indication: PRODUCT USED FOR UNKNOWN INDICATION

REACTIONS (2)
  - Mallory-Weiss syndrome [Recovered/Resolved]
  - Gastrointestinal haemorrhage [Recovered/Resolved]
